FAERS Safety Report 8118392-9 (Version None)
Quarter: 2012Q1

REPORT INFORMATION
  Report Type: 
  Country: None (occurrence: None)
  Receive Date: 20120207
  Receipt Date: 20120127
  Transmission Date: 20120608
  Serious: Yes (Hospitalization, Other)
  Sender: FDA-Public Use
  Company Number: US-BAYER-201041619NA

PATIENT
  Age: 43 Year
  Sex: Female
  Weight: 90.703 kg

DRUGS (12)
  1. IBUPROFEN (ADVIL) [Concomitant]
  2. HYDROCHLOROTHIAZIDE [Concomitant]
  3. POTASSIUM SUPPLEMENTS [Concomitant]
  4. TRAMADOL HCL [Concomitant]
  5. NAPROXEN (ALEVE) [Concomitant]
  6. METHYLPREDNISOLONE [Concomitant]
  7. DICLOFENAC [Concomitant]
  8. YAZ [Suspect]
     Indication: CONTRACEPTION
     Dosage: UNK
     Dates: start: 20070401, end: 20091201
  9. MOTRIN [Concomitant]
  10. CYCLOBENZAPRINE [Concomitant]
  11. YAZ [Suspect]
     Indication: PREMENSTRUAL SYNDROME
  12. SINGULAIR [Concomitant]

REACTIONS (4)
  - PULMONARY EMBOLISM [None]
  - GALLBLADDER NON-FUNCTIONING [None]
  - DEEP VEIN THROMBOSIS [None]
  - DYSPNOEA [None]
